FAERS Safety Report 8193055-2 (Version None)
Quarter: 2012Q1

REPORT INFORMATION
  Report Type: 
  Country: None (occurrence: None)
  Receive Date: 20120308
  Receipt Date: 20120301
  Transmission Date: 20120608
  Serious: Yes (Life-Threatening)
  Sender: FDA-Public Use
  Company Number: US-COVIDIEN/TYCO HEALTHCARE/MALLINCKRODT-T201200800

PATIENT
  Age: 47 Year
  Sex: Female
  Weight: 82 kg

DRUGS (3)
  1. ETOMIDATE [Suspect]
     Indication: GENERAL ANAESTHESIA
     Dosage: 14 MG
     Route: 042
  2. SUCCINYLCHOLINE CHLORIDE [Suspect]
     Indication: GENERAL ANAESTHESIA
     Dosage: 100 MG, SINGLE
     Route: 042
  3. FENTANYL CITRATE [Suspect]
     Indication: GENERAL ANAESTHESIA
     Dosage: 100 MCG SINGLE
     Route: 042

REACTIONS (2)
  - BRADYCARDIA [None]
  - CARDIAC ARREST [None]
